FAERS Safety Report 7688849-3 (Version None)
Quarter: 2011Q3

REPORT INFORMATION
  Report Type: 
  Country: None (occurrence: None)
  Receive Date: 20110817
  Receipt Date: 20110805
  Transmission Date: 20111222
  Serious: Yes (Hospitalization, Other)
  Sender: FDA-Public Use
  Company Number: PHEH2011US00965

PATIENT
  Sex: Female

DRUGS (1)
  1. AREDIA [Suspect]
     Indication: MULTIPLE MYELOMA
     Dosage: 90 MG, QMO
     Route: 042
     Dates: start: 19951229, end: 20020329

REACTIONS (12)
  - COMPRESSION FRACTURE [None]
  - NEOPLASM MALIGNANT [None]
  - BREAST MASS [None]
  - INTERVERTEBRAL DISC PROTRUSION [None]
  - NEOPLASM PROGRESSION [None]
  - CERVICOBRACHIAL SYNDROME [None]
  - DENTAL CARIES [None]
  - BREAST CALCIFICATIONS [None]
  - PYREXIA [None]
  - PAIN [None]
  - PERIOSTITIS [None]
  - BLOOD GLUCOSE INCREASED [None]
